FAERS Safety Report 5756699-0 (Version None)
Quarter: 2008Q2

REPORT INFORMATION
  Report Type: 
  Country: None (occurrence: None)
  Receive Date: 20080529
  Receipt Date: 20080520
  Transmission Date: 20081010
  Serious: Yes (Death, Hospitalization)
  Sender: FDA-Public Use
  Company Number: 2008US001229

PATIENT
  Age: 61 Year
  Sex: Male

DRUGS (2)
  1. PROGRAF [Suspect]
     Indication: LIVER TRANSPLANT
     Dosage: 3 MG, BID, ORAL
     Route: 048
     Dates: start: 20071101
  2. NEORAL [Concomitant]

REACTIONS (14)
  - CANDIDA PNEUMONIA [None]
  - CHEST DISCOMFORT [None]
  - COAGULOPATHY [None]
  - DIARRHOEA [None]
  - FUNGAL SEPSIS [None]
  - HEPATIC FAILURE [None]
  - LACTIC ACIDOSIS [None]
  - NAUSEA [None]
  - PLATELET COUNT DECREASED [None]
  - RENAL FAILURE ACUTE [None]
  - RESPIRATORY DISTRESS [None]
  - RESTLESSNESS [None]
  - SEPTIC SHOCK [None]
  - VOMITING [None]
